FAERS Safety Report 4426181-1 (Version None)
Quarter: 2004Q3

REPORT INFORMATION
  Report Type: 
  Country: None (occurrence: None)
  Receive Date: 20040811
  Receipt Date: 20040728
  Transmission Date: 20050211
  Serious: Yes (Hospitalization, Other)
  Sender: FDA-Public Use
  Company Number: USA040464011

PATIENT
  Age: 68 Year
  Sex: Female

DRUGS (13)
  1. FORTEO [Suspect]
     Indication: OSTEOPOROSIS
     Dosage: 20 UG/1 DAY
     Dates: start: 20040326
  2. DILTIAZEM [Concomitant]
  3. NEXIUM [Concomitant]
  4. FOLIC ACID [Concomitant]
  5. LISINOPRIL [Concomitant]
  6. COSAMIN [Concomitant]
  7. VITAMIN C [Concomitant]
  8. CALCIUM [Concomitant]
  9. COMBIVENT [Concomitant]
  10. ADVAIR DISKUS 100/50 [Concomitant]
  11. ALBUTEROL [Concomitant]
  12. B12 ANKERMANN (CYANOCOBALAMIN) [Concomitant]
  13. ASPIRIN [Concomitant]

REACTIONS (13)
  - ARTHRALGIA [None]
  - CONTUSION [None]
  - CYST [None]
  - FALL [None]
  - HAND FRACTURE [None]
  - JOINT DISLOCATION [None]
  - NAUSEA [None]
  - PAIN [None]
  - PHARMACEUTICAL PRODUCT COMPLAINT [None]
  - RADIUS FRACTURE [None]
  - ROTATOR CUFF SYNDROME [None]
  - ULNA FRACTURE [None]
  - WRIST FRACTURE [None]
